FAERS Safety Report 7977757-6 (Version None)
Quarter: 2011Q4

REPORT INFORMATION
  Report Type: 
  Country: None (occurrence: None)
  Receive Date: 20111214
  Receipt Date: 20111129
  Transmission Date: 20120403
  Serious: No
  Sender: FDA-Public Use
  Company Number: US-AMGEN-USASP2011047642

PATIENT
  Age: 66 Year
  Sex: Female
  Weight: 70.295 kg

DRUGS (2)
  1. TREXALL [Concomitant]
     Dosage: 2.5 MG, UNK (10 TABLETS)
     Route: 048
     Dates: start: 20070101
  2. ENBREL [Suspect]
     Indication: RHEUMATOID ARTHRITIS
     Dosage: 50 MG, QWK
     Route: 058
     Dates: start: 20100826

REACTIONS (1)
  - NAUSEA [None]
